FAERS Safety Report 19047091 (Version 2)
Quarter: 2021Q2

REPORT INFORMATION
  Report Type: Report from Study
  Country: IL (occurrence: IL)
  Receive Date: 20210323
  Receipt Date: 20210515
  Transmission Date: 20210717
  Serious: Yes (Hospitalization, Other)
  Sender: FDA-Public Use
  Company Number: NVSC2020IL336930

PATIENT
  Age: 68 Year
  Sex: Female

DRUGS (3)
  1. AFINITOR [Suspect]
     Active Substance: EVEROLIMUS
     Dosage: 10 MG, QD
     Route: 048
     Dates: start: 20210309
  2. AFINITOR [Suspect]
     Active Substance: EVEROLIMUS
     Indication: BREAST CANCER
     Dosage: 10 MG, QD
     Route: 048
     Dates: start: 20201211, end: 20201217
  3. AFINITOR [Suspect]
     Active Substance: EVEROLIMUS
     Dosage: 10 MG, QD
     Route: 048
     Dates: start: 20201227

REACTIONS (18)
  - Diarrhoea [Recovering/Resolving]
  - Dyspnoea [Not Recovered/Not Resolved]
  - Palatal swelling [Recovered/Resolved]
  - Diarrhoea [Recovered/Resolved]
  - Product storage error [Unknown]
  - Oral pain [Recovering/Resolving]
  - Hepatic function abnormal [Not Recovered/Not Resolved]
  - Abdominal distension [Not Recovered/Not Resolved]
  - Stomatitis [Recovered/Resolved]
  - Gastric infection [Unknown]
  - Renal impairment [Not Recovered/Not Resolved]
  - Feeding disorder [Not Recovered/Not Resolved]
  - Gingivitis [Recovered/Resolved]
  - Thyroid disorder [Unknown]
  - Oedema peripheral [Not Recovered/Not Resolved]
  - Metastases to chest wall [Unknown]
  - Ageusia [Not Recovered/Not Resolved]
  - Poor quality product administered [Unknown]

NARRATIVE: CASE EVENT DATE: 20201212
